FAERS Safety Report 9729291 (Version 1)
Quarter: 2013Q4

REPORT INFORMATION
  Report Type: Spontaneous
  Country: US (occurrence: US)
  Receive Date: 20131204
  Receipt Date: 20131204
  Transmission Date: 20140711
  Serious: Yes (Other)
  Sender: FDA-Public Use
  Company Number: US-BAYER-2013-147437

PATIENT
  Age: 52 Year
  Sex: Female
  Weight: 112.2 kg

DRUGS (14)
  1. YASMIN [Suspect]
  2. OCELLA [Suspect]
  3. AMOXIL [Concomitant]
     Dosage: 500 MG, UNK
     Dates: start: 20080816
  4. RANITIDINE [Concomitant]
     Dosage: 300 MG, UNK
     Dates: start: 20080816
  5. RANITIDINE [Concomitant]
     Dosage: UNK
     Dates: start: 20080827
  6. ZITHROMAX [Concomitant]
     Dosage: UNK
     Dates: start: 20080827
  7. MUCINEX [Concomitant]
     Dosage: UNK
     Dates: start: 20080816
  8. MUCINEX [Concomitant]
     Dosage: UNK
     Dates: start: 20080827
  9. AZITHROMYCIN [Concomitant]
     Dosage: 250 MG, UNK
  10. TRICOR [Concomitant]
  11. VICODIN [Concomitant]
  12. NEXIUM [Concomitant]
  13. HYDROCHLOROTHIAZIDE [Concomitant]
  14. LISINOPRIL [Concomitant]

REACTIONS (2)
  - Deep vein thrombosis [Recovered/Resolved]
  - Pulmonary embolism [Recovered/Resolved]
